FAERS Safety Report 7213147-1 (Version None)
Quarter: 2011Q1

REPORT INFORMATION
  Report Type: 
  Country: None (occurrence: None)
  Receive Date: 20110106
  Receipt Date: 20110104
  Transmission Date: 20110831
  Serious: Yes (Hospitalization, Other)
  Sender: FDA-Public Use
  Company Number: FR-BRISTOL-MYERS SQUIBB COMPANY-15472145

PATIENT
  Age: 74 Year
  Sex: Female

DRUGS (3)
  1. HEPARIN CALCIUM [Suspect]
     Dosage: INTERRUPTED ON 24AUG2010
  2. KARDEGIC [Suspect]
     Dates: end: 20100822
  3. COUMADIN [Suspect]
     Dates: end: 20100821

REACTIONS (3)
  - HAEMANGIOMA [None]
  - HAEMATOMA [None]
  - ANAEMIA [None]
